FAERS Safety Report 11928093 (Version 2)
Quarter: 2016Q1

REPORT INFORMATION
  Report Type: Spontaneous
  Country: US (occurrence: US)
  Receive Date: 20160119
  Receipt Date: 20160127
  Transmission Date: 20160526
  Serious: Yes (Other)
  Sender: FDA-Public Use
  Company Number: CHPA2016US000871

PATIENT
  Age: 78 Year
  Sex: Male

DRUGS (2)
  1. GAS-X EXTRA STRENGTH [Suspect]
     Active Substance: DIMETHICONE
     Dosage: 2 DF, UNK
     Dates: start: 20150107
  2. GAS-X EXTRA STRENGTH [Suspect]
     Active Substance: DIMETHICONE
     Indication: FLATULENCE
     Dosage: UNK
     Route: 048

REACTIONS (5)
  - Lung neoplasm malignant [Recovering/Resolving]
  - Constipation [Unknown]
  - Adrenal gland cancer [Recovering/Resolving]
  - Chronic obstructive pulmonary disease [Not Recovered/Not Resolved]
  - Muscle spasms [Recovered/Resolved]
